FAERS Safety Report 7672301-5 (Version None)
Quarter: 2011Q3

REPORT INFORMATION
  Report Type: 
  Country: None (occurrence: None)
  Receive Date: 20110809
  Receipt Date: 20110801
  Transmission Date: 20111222
  Serious: Yes (Other)
  Sender: FDA-Public Use
  Company Number: PHHY2011US09506

PATIENT
  Sex: Female

DRUGS (25)
  1. CYMBALTA [Concomitant]
     Dosage: 30 MG, UNK,DAILY
  2. LEVOTHYROXINE SODIUM [Concomitant]
     Dosage: 1 MG, DAILY
  3. HEPARIN [Concomitant]
     Dosage: UNK UKN, UNK
  4. BACLOFEN [Concomitant]
     Dosage: 20 MG, TID
  5. IMMUNOGLOBULINS [Concomitant]
     Dosage: 400 MG, UNK,MONTHLY
     Route: 042
  6. LEVOTHYROXINE SODIUM [Concomitant]
     Dosage: 0.150 MG, UNK
     Dates: start: 20110201
  7. MAXALT [Concomitant]
     Indication: MIGRAINE
     Dosage: 10 MG, PRN
  8. VITAMIN B COMPLEX CAP [Concomitant]
     Dosage: UNK UKN, UNK
  9. CALCIUM CARBONATE [Concomitant]
     Dosage: UNK UKN, UNK
  10. BUPROPION HCL [Concomitant]
     Dosage: UNK UKN, UNK
  11. COUMADIN [Concomitant]
     Dosage: UNK UKN, UNK
     Dates: start: 20100927
  12. VITAMIN D [Concomitant]
     Dosage: UNK UKN, UNK
  13. ZINC [Concomitant]
     Dosage: UNK UKN, UNK
  14. BETASERON [Concomitant]
     Dosage: UNK UKN, UNK
     Dates: start: 20101206
  15. GILENYA [Suspect]
     Indication: MULTIPLE SCLEROSIS
     Dosage: 0.5 MG, QD
     Route: 048
     Dates: start: 20101130, end: 20110328
  16. LEVOTHYROXINE SODIUM [Concomitant]
     Dosage: 0.2 MG, UNK
     Dates: start: 20110525
  17. COPAXONE [Concomitant]
     Dosage: UNK UKN, UNK
     Dates: start: 20101206
  18. REBIF [Concomitant]
     Dosage: UNK UKN, UNK
     Dates: start: 20101206
  19. ANTIDEPRESSANTS [Concomitant]
     Dosage: UNK UKN, UNK
  20. WELLBUTRIN XL [Concomitant]
     Dosage: 150 MG, BID
  21. MAGNESIUM [Concomitant]
     Dosage: UNK UKN, UNK
  22. DARVOCET [Concomitant]
     Dosage: UNK UKN, UNK
     Dates: start: 20101206
  23. ERYTHROMYCIN [Concomitant]
     Dosage: UNK UKN, UNK
     Dates: start: 20101206
  24. LEVOTHYROXINE SODIUM [Concomitant]
     Dosage: 0.05 MG, UNK
     Dates: start: 20110425
  25. AMOXICILLIN [Concomitant]
     Dosage: UNK UKN, UNK
     Dates: start: 20101206

REACTIONS (24)
  - PARANOIA [None]
  - CYSTITIS [None]
  - MEMORY IMPAIRMENT [None]
  - FEELING ABNORMAL [None]
  - MENSTRUATION IRREGULAR [None]
  - BLOOD PRESSURE DECREASED [None]
  - ARTHRALGIA [None]
  - MUSCLE SPASMS [None]
  - GAIT DISTURBANCE [None]
  - FATIGUE [None]
  - FALL [None]
  - MOOD SWINGS [None]
  - EMOTIONAL DISORDER [None]
  - LYMPHOCYTE COUNT DECREASED [None]
  - FURUNCLE [None]
  - CONFUSIONAL STATE [None]
  - PAIN IN EXTREMITY [None]
  - BACK PAIN [None]
  - VISUAL IMPAIRMENT [None]
  - ALTERED VISUAL DEPTH PERCEPTION [None]
  - BALANCE DISORDER [None]
  - AMENORRHOEA [None]
  - VAGINAL INFECTION [None]
  - HEADACHE [None]
